FAERS Safety Report 22261574 (Version 1)
Quarter: 2023Q2

REPORT INFORMATION
  Report Type: Report from Study
  Country: CO (occurrence: CO)
  Receive Date: 20230427
  Receipt Date: 20230427
  Transmission Date: 20230721
  Serious: Yes (Hospitalization)
  Sender: FDA-Public Use
  Company Number: CO-JNJFOC-20221259184

PATIENT
  Age: 58 Year
  Sex: Female
  Weight: 60 kg

DRUGS (4)
  1. INVEGA SUSTENNA [Suspect]
     Active Substance: PALIPERIDONE PALMITATE
     Indication: Schizophrenia
     Route: 030
     Dates: start: 20220610, end: 20221228
  2. INVEGA SUSTENNA [Suspect]
     Active Substance: PALIPERIDONE PALMITATE
  3. INVEGA SUSTENNA [Suspect]
     Active Substance: PALIPERIDONE PALMITATE
  4. LITHIUM CARBONATE [Concomitant]
     Active Substance: LITHIUM CARBONATE

REACTIONS (4)
  - Schizophrenia [Not Recovered/Not Resolved]
  - Therapeutic response shortened [Not Recovered/Not Resolved]
  - Movement disorder [Unknown]
  - Fall [Unknown]

NARRATIVE: CASE EVENT DATE: 20221201
